FAERS Safety Report 8308614-3 (Version None)
Quarter: 2012Q2

REPORT INFORMATION
  Report Type: 
  Country: None (occurrence: None)
  Receive Date: 20120424
  Receipt Date: 20070621
  Transmission Date: 20120825
  Serious: Yes (Hospitalization)
  Sender: FDA-Public Use
  Company Number: FR-ROCHE-GNE243497

PATIENT
  Age: 59 Year
  Sex: Female

DRUGS (5)
  1. DOXORUBICIN HCL [Suspect]
     Indication: LYMPHOMA
     Dosage: UNK, UNK
     Route: 042
     Dates: start: 20070406
  2. CYCLOPHOSPHAMIDE [Suspect]
     Indication: LYMPHOMA
     Dosage: 750 MG/M2, UNK
     Route: 042
     Dates: start: 20070406
  3. VINCRISTINE SULFATE [Suspect]
     Indication: LYMPHOMA
     Dosage: UNK, UNK
     Route: 042
     Dates: start: 20070406
  4. MABTHERA [Suspect]
     Indication: LYMPHOMA
     Dosage: UNK, UNK
     Route: 042
     Dates: start: 20070406
  5. PREDNISONE TAB [Suspect]
     Indication: LYMPHOMA
     Route: 042
     Dates: start: 20070406

REACTIONS (2)
  - PYREXIA [None]
  - FEBRILE BONE MARROW APLASIA [None]
